FAERS Safety Report 4423986-8 (Version None)
Quarter: 2004Q3

REPORT INFORMATION
  Report Type: 
  Country: None (occurrence: None)
  Receive Date: 20040805
  Receipt Date: 20040723
  Transmission Date: 20050211
  Serious: Yes (Disabling)
  Sender: FDA-Public Use
  Company Number: 2004051149

PATIENT
  Age: 73 Year
  Sex: Male
  Weight: 140 kg

DRUGS (9)
  1. GABAPENTIN [Suspect]
     Indication: PAIN
     Dosage: 900 MG (300 MG, 3 IN 1 D), ORAL
     Route: 048
     Dates: start: 20040610, end: 20040628
  2. ACETYLSALICYLIC ACID SRT [Concomitant]
  3. BUMETANIDE [Concomitant]
  4. ACETAMINOPHEN [Concomitant]
  5. CODEINE (CODEINE) [Concomitant]
  6. ISOSORBIDE MONONITRATE [Concomitant]
  7. TRAMADOL HCL [Concomitant]
  8. PERINDOPRIL (PERINDOPRIL) [Concomitant]
  9. OMEPRAZOLE [Concomitant]

REACTIONS (2)
  - MUSCLE SPASMS [None]
  - MYALGIA [None]
